FAERS Safety Report 13914443 (Version 1)
Quarter: 2017Q3

REPORT INFORMATION
  Report Type: Spontaneous
  Country: US (occurrence: US)
  Receive Date: 20170828
  Receipt Date: 20170828
  Transmission Date: 20171127
  Serious: No
  Sender: FDA-Public Use
  Company Number: US-ROCHE-1139883

PATIENT
  Sex: Male

DRUGS (7)
  1. HYDROCHLOROTHIAZIDE. [Concomitant]
     Active Substance: HYDROCHLOROTHIAZIDE
     Route: 065
  2. NUTROPIN AQ [Suspect]
     Active Substance: SOMATROPIN
     Indication: FANCONI SYNDROME
  3. NUTROPIN [Suspect]
     Active Substance: SOMATROPIN
     Indication: FANCONI SYNDROME
  4. DIHYDROTACHYSTEROL [Concomitant]
     Active Substance: DIHYDROTACHYSTEROL
     Route: 065
  5. POLYCITRA-K [Concomitant]
  6. NUTROPIN AQ [Suspect]
     Active Substance: SOMATROPIN
     Indication: CHRONIC KIDNEY DISEASE
     Route: 065
  7. NUTROPIN [Suspect]
     Active Substance: SOMATROPIN
     Indication: CHRONIC KIDNEY DISEASE
     Route: 065

REACTIONS (3)
  - Vision blurred [Unknown]
  - Arthralgia [Unknown]
  - Pain in extremity [Unknown]
